FAERS Safety Report 16638580 (Version 1)
Quarter: 2019Q3

REPORT INFORMATION
  Report Type: Spontaneous
  Country: US (occurrence: US)
  Receive Date: 20190726
  Receipt Date: 20190726
  Transmission Date: 20191004
  Serious: Yes (Other)
  Sender: FDA-Public Use
  Company Number: US-BAUSCH-BL-2019-020822

PATIENT
  Age: 0 Year
  Sex: Female

DRUGS (1)
  1. DIAZEPAM RECTAL GEL [Suspect]
     Active Substance: DIAZEPAM
     Indication: SEIZURE
     Route: 054
     Dates: start: 2019

REACTIONS (4)
  - Syringe issue [Unknown]
  - Seizure [Unknown]
  - Product use issue [Unknown]
  - Therapy cessation [Unknown]

NARRATIVE: CASE EVENT DATE: 2019
